FAERS Safety Report 4405540-7 (Version None)
Quarter: 2004Q3

REPORT INFORMATION
  Report Type: 
  Country: None (occurrence: None)
  Receive Date: 20040723
  Receipt Date: 20030925
  Transmission Date: 20050211
  Serious: No
  Sender: FDA-Public Use
  Company Number: US-GLAXOSMITHKLINE-A0427538A

PATIENT
  Age: 67 Year
  Sex: Male

DRUGS (4)
  1. AVANDIA [Suspect]
     Route: 048
     Dates: start: 20030921
  2. OXYCONTIN [Concomitant]
  3. NAPROSYN [Concomitant]
  4. ACCUPRIL [Concomitant]

REACTIONS (1)
  - HYPERGLYCAEMIA [None]
